FAERS Safety Report 24264641 (Version 1)
Quarter: 2024Q3

REPORT INFORMATION
  Report Type: Report from Study
  Country: US (occurrence: US)
  Receive Date: 20240829
  Receipt Date: 20240829
  Transmission Date: 20241016
  Serious: Yes (Hospitalization, Other)
  Sender: BIOVITRUM
  Company Number: US-BIOVITRUM-2024-US-010225

PATIENT
  Age: 82 Year
  Sex: Male

DRUGS (2)
  1. DOPTELET [Suspect]
     Active Substance: AVATROMBOPAG MALEATE
     Indication: Immune thrombocytopenia
     Dosage: 1 TABLET 3 TIMES WEEKLY
     Route: 048
     Dates: start: 20220826
  2. DOPTELET [Suspect]
     Active Substance: AVATROMBOPAG MALEATE
     Dosage: 1 TABLET 3 TIMES WEEKLY
     Dates: start: 20220826

REACTIONS (3)
  - Arrhythmia [Unknown]
  - Skin lesion [Unknown]
  - Platelet count increased [Unknown]
